FAERS Safety Report 15826218 (Version 3)
Quarter: 2019Q2

REPORT INFORMATION
  Report Type: Spontaneous
  Country: US (occurrence: US)
  Receive Date: 20190115
  Receipt Date: 20190425
  Transmission Date: 20190711
  Serious: Yes (Other)
  Sender: FDA-Public Use
  Company Number: US-PFIZER INC-2019016006

PATIENT
  Age: 56 Year
  Sex: Female
  Weight: 73 kg

DRUGS (5)
  1. SEROQUEL [Concomitant]
     Active Substance: QUETIAPINE FUMARATE
     Indication: BIPOLAR DISORDER
     Dosage: 400 MG, 2X/DAY (400 MG, 2 PILLS A DAY, ONE IN THE MORNING AND ONE IN NIGHT)
     Dates: start: 200809
  2. PLATINUM [Concomitant]
     Active Substance: PLATINUM
     Indication: ARTHRITIS
     Dosage: 200 MG, 2X/DAY (200 MG, TABLET, TWICE A DAY)
     Dates: start: 201805
  3. CHANTIX [Suspect]
     Active Substance: VARENICLINE TARTRATE
     Indication: SMOKING CESSATION THERAPY
     Dosage: 1 MG, 2X/DAY
     Route: 048
  4. CHANTIX [Suspect]
     Active Substance: VARENICLINE TARTRATE
     Indication: PULMONARY MASS
     Dosage: 10 MG, 2X/DAY
     Dates: start: 20190203
  5. PLAQUENIL [Concomitant]
     Active Substance: HYDROXYCHLOROQUINE SULFATE
     Indication: SYSTEMIC LUPUS ERYTHEMATOSUS
     Dosage: 200 MG, 2X/DAY
     Dates: start: 201805

REACTIONS (4)
  - Weight increased [Unknown]
  - Psoriasis [Unknown]
  - Lung neoplasm malignant [Not Recovered/Not Resolved]
  - Eczema [Unknown]
